FAERS Safety Report 17033857 (Version 2)
Quarter: 2019Q4

REPORT INFORMATION
  Report Type: Report from Study
  Country: US (occurrence: US)
  Receive Date: 20191114
  Receipt Date: 20191127
  Transmission Date: 20200122
  Serious: Yes (Hospitalization, Other)
  Sender: FDA-Public Use
  Company Number: US-ACTELION-A-NJ2019-190360

PATIENT
  Age: 45 Year
  Sex: Female
  Weight: 86.17 kg

DRUGS (3)
  1. OPSUMIT [Suspect]
     Active Substance: MACITENTAN
     Indication: PULMONARY HYPERTENSION
     Dosage: 10 MG, QD
     Route: 048
  2. TYVASO [Suspect]
     Active Substance: TREPROSTINIL
     Indication: PRODUCT USED FOR UNKNOWN INDICATION
     Route: 065
  3. REVATIO [Concomitant]
     Active Substance: SILDENAFIL CITRATE

REACTIONS (20)
  - Anxiety [Unknown]
  - Oedema peripheral [Unknown]
  - Hypotension [Unknown]
  - Hospitalisation [Unknown]
  - Constipation [Unknown]
  - Abdominal distension [Unknown]
  - Palpitations [Unknown]
  - Presyncope [Unknown]
  - Pain [Unknown]
  - Cholecystectomy [Unknown]
  - Dizziness [Unknown]
  - Nervousness [Unknown]
  - Catheterisation cardiac abnormal [Unknown]
  - Fatigue [Unknown]
  - Product dose omission [Unknown]
  - Weight increased [Unknown]
  - Depressed mood [Unknown]
  - Flatulence [Unknown]
  - Drug intolerance [Unknown]
  - Adverse event [Unknown]

NARRATIVE: CASE EVENT DATE: 201909
